FAERS Safety Report 15571965 (Version 2)
Quarter: 2019Q1

REPORT INFORMATION
  Report Type: Spontaneous
  Country: US (occurrence: US)
  Receive Date: 20181031
  Receipt Date: 20190125
  Transmission Date: 20190417
  Serious: Yes (Hospitalization)
  Sender: FDA-Public Use
  Company Number: US-EMMAUS MEDICAL, INC.-EMM201810-000698

PATIENT
  Age: 17 Year
  Sex: Male

DRUGS (1)
  1. ENDARI [Suspect]
     Active Substance: GLUTAMINE
     Indication: SICKLE CELL DISEASE
     Route: 048
     Dates: start: 20180501

REACTIONS (2)
  - Sickle cell anaemia with crisis [Recovered/Resolved]
  - Sickle cell anaemia with crisis [Recovered/Resolved]

NARRATIVE: CASE EVENT DATE: 20180901
